FAERS Safety Report 21740850 (Version 1)
Quarter: 2022Q4

REPORT INFORMATION
  Report Type: Spontaneous
  Country: US (occurrence: None)
  Receive Date: 20221215
  Receipt Date: 20221215
  Transmission Date: 20230113
  Serious: No
  Sender: FDA-Public Use
  Company Number: None

PATIENT
  Age: 41 Year
  Sex: Female

DRUGS (1)
  1. TALTZ [Suspect]
     Active Substance: IXEKIZUMAB
     Indication: Psoriasis
     Dosage: OTHER FREQUENCY : SUBCUTANEOUSLY;?OTHER ROUTE : AT WK 12 THEN EVERY 4 WEEKS AS DIRECTED;?
     Route: 050
     Dates: start: 202211

REACTIONS (1)
  - Nasopharyngitis [None]
